FAERS Safety Report 11190285 (Version 2)
Quarter: 2015Q2

REPORT INFORMATION
  Report Type: Spontaneous
  Country: DK (occurrence: DK)
  Receive Date: 20150615
  Receipt Date: 20150616
  Transmission Date: 20150821
  Serious: Yes (Hospitalization)
  Sender: FDA-Public Use
  Company Number: PHHY2015DK069981

PATIENT
  Age: 39 Year
  Sex: Male

DRUGS (4)
  1. PREGABALIN. [Interacting]
     Active Substance: PREGABALIN
     Indication: SCHIZOPHRENIA, PARANOID TYPE
     Dosage: 75 MG
     Route: 065
  2. CLOZAPINE. [Suspect]
     Active Substance: CLOZAPINE
     Indication: SCHIZOPHRENIA, PARANOID TYPE
     Dosage: 500 MG, QD (100 + 0 + 0 + 400 MG)
     Route: 065
  3. PREGABALIN. [Interacting]
     Active Substance: PREGABALIN
     Dosage: 600 MG, QD (ON DAY 28)
     Route: 065
  4. PREGABALIN. [Interacting]
     Active Substance: PREGABALIN
     Dosage: 525 MG, QD
     Route: 065

REACTIONS (8)
  - Anxiety [Recovering/Resolving]
  - Fall [Unknown]
  - Drug interaction [Unknown]
  - Loss of consciousness [Unknown]
  - Salivary hypersecretion [Unknown]
  - Antipsychotic drug level increased [Unknown]
  - Fracture [Unknown]
  - Epilepsy [Recovered/Resolved]
